FAERS Safety Report 13659165 (Version 1)
Quarter: 2017Q2

REPORT INFORMATION
  Report Type: Spontaneous
  Country: KR (occurrence: KR)
  Receive Date: 20170616
  Receipt Date: 20170616
  Transmission Date: 20170830
  Serious: Yes (Other)
  Sender: FDA-Public Use
  Company Number: KR-JNJFOC-20170608434

PATIENT

DRUGS (6)
  1. DOXORUBICIN HYDROCHLORIDE. [Suspect]
     Active Substance: DOXORUBICIN HYDROCHLORIDE
     Indication: NEUROBLASTOMA
     Dosage: ON DAY 2, TOTAL DOSE: 30 MG/M2
     Route: 065
  2. IFOSFAMIDE. [Suspect]
     Active Substance: IFOSFAMIDE
     Indication: NEUROBLASTOMA
     Dosage: ON DAY 0-4, TOTAL DOSE: 6000 MG/M2
     Route: 065
  3. CARBOPLATIN. [Suspect]
     Active Substance: CARBOPLATIN
     Indication: NEUROBLASTOMA
     Dosage: ON DAY 0,1, TOTAL DOSE: 800 MG/M2
     Route: 065
  4. ETOPOSIDE. [Suspect]
     Active Substance: ETOPOSIDE
     Indication: NEUROBLASTOMA
     Dosage: ON DAY 2, 5, TOTAL DOSE: 200 MG/M2??ON DAY 0-4, TOTAL DOSE: 500 MG/M2
     Route: 065
  5. CYCLOPHOSPHAMIDE. [Suspect]
     Active Substance: CYCLOPHOSPHAMIDE
     Indication: NEUROBLASTOMA
     Dosage: ON DAY 3, 4, TOTAL DOSE: 60 MG/KG
     Route: 065
  6. CISPLATIN. [Suspect]
     Active Substance: CISPLATIN
     Indication: NEUROBLASTOMA
     Dosage: ON DAY 0, TOTAL DOSE: 60 MG/M2
     Route: 065

REACTIONS (11)
  - Hyponatraemia [Unknown]
  - Hepatic enzyme increased [Unknown]
  - Febrile neutropenia [Unknown]
  - Infection [Unknown]
  - Hypokalaemia [Unknown]
  - Neutropenia [Unknown]
  - Platelet count decreased [Unknown]
  - Product use in unapproved indication [Unknown]
  - Off label use [Unknown]
  - Renal failure [Unknown]
  - Hyperbilirubinaemia [Unknown]
